FAERS Safety Report 16456168 (Version 1)
Quarter: 2019Q3

REPORT INFORMATION
  Report Type: Spontaneous
  Country: US (occurrence: US)
  Receive Date: 20190619
  Receipt Date: 20190619
  Transmission Date: 20191004
  Serious: Yes (Disabling)
  Sender: FDA-Public Use
  Company Number: None

PATIENT
  Age: 58 Year
  Sex: Male
  Weight: 67.5 kg

DRUGS (1)
  1. LEVOFLOXACIN. [Suspect]
     Active Substance: LEVOFLOXACIN
     Indication: PROSTATITIS
     Dates: start: 20170613, end: 20170616

REACTIONS (6)
  - Plantar fasciitis [None]
  - Tendon disorder [None]
  - Limb injury [None]
  - Tendonitis [None]
  - Ligament sprain [None]
  - Muscular weakness [None]

NARRATIVE: CASE EVENT DATE: 20170613
